FAERS Safety Report 18579493 (Version 1)
Quarter: 2020Q4

REPORT INFORMATION
  Report Type: Report from Study
  Country: None (occurrence: FR)
  Receive Date: 20201204
  Receipt Date: 20201204
  Transmission Date: 20210114
  Serious: Yes (Death)
  Sender: FDA-Public Use
  Company Number: FR-COEPTIS PHARMACEUTICALS, INC.-COE-2020-000084

PATIENT

DRUGS (9)
  1. ALPRAZOLAM. [Suspect]
     Active Substance: ALPRAZOLAM
  2. AMLODIPINE [Suspect]
     Active Substance: AMLODIPINE BESYLATE
  3. HYDROCHLOROTHIAZIDE. [Suspect]
     Active Substance: HYDROCHLOROTHIAZIDE
  4. ZOPICLONE [Suspect]
     Active Substance: ZOPICLONE
  5. TRAMADOL. [Suspect]
     Active Substance: TRAMADOL
  6. NEBIVOLOL. [Suspect]
     Active Substance: NEBIVOLOL
  7. IRBESARTAN. [Suspect]
     Active Substance: IRBESARTAN
  8. DIAZEPAM. [Suspect]
     Active Substance: DIAZEPAM
  9. NORDIAZEPAM [Suspect]
     Active Substance: NORDAZEPAM

REACTIONS (1)
  - Toxicity to various agents [Fatal]
